FAERS Safety Report 23234087 (Version 1)
Quarter: 2023Q4

REPORT INFORMATION
  Report Type: Spontaneous
  Country: IL (occurrence: IT)
  Receive Date: 20231128
  Receipt Date: 20231128
  Transmission Date: 20240110
  Serious: Yes (Other)
  Sender: FDA-Public Use
  Company Number: IL-STRIDES ARCOLAB LIMITED-2023SP017689

PATIENT
  Age: 67 Year
  Sex: Male

DRUGS (8)
  1. ETOPOSIDE [Suspect]
     Active Substance: ETOPOSIDE
     Indication: Diffuse large B-cell lymphoma stage IV
     Dosage: UNK
     Route: 065
     Dates: start: 2020
  2. DEXAMETHASONE [Suspect]
     Active Substance: DEXAMETHASONE
     Indication: Diffuse large B-cell lymphoma stage IV
     Dosage: UNK, CYCLICAL, 3 CYCLES OF R-DHAOX
     Route: 065
     Dates: start: 2020
  3. RITUXIMAB [Suspect]
     Active Substance: RITUXIMAB
     Indication: Diffuse large B-cell lymphoma stage IV
     Dosage: UNK, CYCLICAL, 3 CYCLES OF R-DHAOX
     Route: 065
     Dates: start: 2020
  4. RITUXIMAB [Suspect]
     Active Substance: RITUXIMAB
     Dosage: UNK,
     Route: 065
     Dates: start: 2020
  5. GEMCITABINE [Suspect]
     Active Substance: GEMCITABINE
     Indication: Diffuse large B-cell lymphoma stage IV
     Dosage: UNK
     Route: 065
     Dates: start: 2020
  6. OXALIPLATIN [Suspect]
     Active Substance: OXALIPLATIN
     Indication: Diffuse large B-cell lymphoma stage IV
     Dosage: UNK, CYCLICAL, 3 CYCLES OF R-DHAOX
     Route: 065
     Dates: start: 2020
  7. CYTARABINE [Suspect]
     Active Substance: CYTARABINE
     Indication: Diffuse large B-cell lymphoma stage IV
     Dosage: UNK, CYCLICAL, 3 CYCLES OF R-DHAOX
     Route: 065
     Dates: start: 2020
  8. TISAGENLECLEUCEL [Suspect]
     Active Substance: TISAGENLECLEUCEL
     Indication: Lymphodepletion
     Dosage: UNK, 290TIMES106 TISAGENLECLEUCEL
     Route: 065
     Dates: start: 2020

REACTIONS (3)
  - Pneumoconiosis [Unknown]
  - Therapy non-responder [Unknown]
  - Off label use [Unknown]

NARRATIVE: CASE EVENT DATE: 20200101
